FAERS Safety Report 8832591 (Version 1)
Quarter: 2012Q4

REPORT INFORMATION
  Report Type: 
  Country: IT (occurrence: IT)
  Receive Date: 20121010
  Receipt Date: 20121010
  Transmission Date: 20130627
  Serious: Yes (Congenital Anomaly)
  Sender: FDA-Public Use
  Company Number: IT-009507513-1210ITA003190

PATIENT
  Age: 1 Day

DRUGS (3)
  1. TRILAFON [Suspect]
     Indication: NEUROSIS
     Dosage: UNK
     Route: 064
     Dates: start: 20111011, end: 20120927
  2. LORAZEPAM [Suspect]
     Indication: PANIC ATTACK
     Dosage: UNK
     Route: 064
     Dates: start: 20120201, end: 20120228
  3. ANAFRANIL [Suspect]
     Indication: DEPRESSION
     Dosage: UNK
     Route: 064
     Dates: start: 20081021, end: 20120927

REACTIONS (2)
  - Cleft palate [Unknown]
  - Foetal exposure during pregnancy [Unknown]
